FAERS Safety Report 19138487 (Version 5)
Quarter: 2022Q1

REPORT INFORMATION
  Report Type: Report from Study
  Country: CA (occurrence: CA)
  Receive Date: 20210415
  Receipt Date: 20220217
  Transmission Date: 20220423
  Serious: Yes (Other)
  Sender: FDA-Public Use
  Company Number: CA-JNJFOC-20210418985

PATIENT
  Age: 63 Year
  Sex: Female
  Weight: 84.898 kg

DRUGS (2)
  1. REMICADE [Suspect]
     Active Substance: INFLIXIMAB
     Indication: Crohn^s disease
     Dosage: ON 19-JUL-2021, THE PATIENT RECEIVED 50TH INFLIXIMAB INFUSION AT DOSE OF 500 MG AND PARTIAL HARVEY-B
     Route: 042
     Dates: start: 20161228
  2. REMICADE [Suspect]
     Active Substance: INFLIXIMAB
     Route: 042
     Dates: start: 20210616

REACTIONS (13)
  - Stoma creation [Unknown]
  - Mammoplasty [Unknown]
  - Blepharoplasty [Recovering/Resolving]
  - Scar excision [Recovering/Resolving]
  - Gastrointestinal stoma complication [Recovering/Resolving]
  - Dermatitis contact [Unknown]
  - Abdominal pain [Recovering/Resolving]
  - Diarrhoea [Unknown]
  - Frequent bowel movements [Recovering/Resolving]
  - Incorrect dose administered [Unknown]
  - Off label use [Unknown]
  - Stoma site ulcer [Recovering/Resolving]
  - Pain in extremity [Unknown]

NARRATIVE: CASE EVENT DATE: 20200908
